FAERS Safety Report 8923152 (Version 1)
Quarter: 2012Q4

REPORT INFORMATION
  Report Type: 
  Country: FR (occurrence: FR)
  Receive Date: 20121123
  Receipt Date: 20121123
  Transmission Date: 20130627
  Serious: Yes (Hospitalization)
  Sender: FDA-Public Use
  Company Number: PHHY2012FR105277

PATIENT
  Age: 66 Year
  Sex: Male

DRUGS (10)
  1. LOXEN [Suspect]
     Route: 048
     Dates: end: 20121012
  2. NEORAL [Suspect]
     Route: 048
     Dates: end: 20120902
  3. INEXIUM [Suspect]
     Indication: STRESS
     Route: 048
  4. TEMERIT [Suspect]
     Route: 048
     Dates: end: 20121012
  5. EUPRESSYL [Suspect]
     Route: 048
     Dates: end: 20121012
  6. PARACETAMOL [Concomitant]
  7. CELLCEPT [Concomitant]
     Dates: start: 20120727
  8. KEPPRA [Concomitant]
     Indication: CONVULSION
     Dates: start: 201208
  9. LASILIX [Concomitant]
     Indication: PULMONARY OEDEMA
     Dosage: 120 mg, QD
     Dates: start: 201208
  10. LASILIX [Concomitant]
     Dosage: 125 mg, BID

REACTIONS (3)
  - Cardiorenal syndrome [Unknown]
  - Renal failure acute [Recovering/Resolving]
  - Tubulointerstitial nephritis [Recovering/Resolving]
